FAERS Safety Report 15213525 (Version 1)
Quarter: 2018Q3

REPORT INFORMATION
  Report Type: Spontaneous
  Country: GB (occurrence: GB)
  Receive Date: 20180730
  Receipt Date: 20180730
  Transmission Date: 20181010
  Serious: Yes (Other)
  Sender: FDA-Public Use
  Company Number: GB-CONCORDIA PHARMACEUTICALS INC.-E2B_00014825

PATIENT
  Age: 18 Year
  Sex: Male
  Weight: 42 kg

DRUGS (10)
  1. PROPOFOL. [Suspect]
     Active Substance: PROPOFOL
     Indication: ANAESTHESIA
     Dosage: 3.3 MCG/ML
     Route: 042
  2. MAGNESIUM SULFATE. [Suspect]
     Active Substance: MAGNESIUM SULFATE
  3. TRANEXAMIC ACID. [Suspect]
     Active Substance: TRANEXAMIC ACID
  4. DIAZEPAM. [Suspect]
     Active Substance: DIAZEPAM
     Indication: ANXIETY
  5. GABAPENTIN. [Suspect]
     Active Substance: GABAPENTIN
     Dosage: THE NIGHT BEFORE SURGERY AND ON THE MORNING OF SURGERY,
  6. CLONIDINE. [Suspect]
     Active Substance: CLONIDINE
     Dosage: 4 ALIQUOTS OF 15 MICROGRAMS OVER SEVERAL HOURS
  7. FENTANYL. [Suspect]
     Active Substance: FENTANYL
  8. MIDAZOLAM [Suspect]
     Active Substance: MIDAZOLAM HYDROCHLORIDE
     Indication: ANXIETY
     Dosage: HALF AN HOUR BEFORE INDUCTION OF ANAESTHESIA
  9. KETAMINE [Suspect]
     Active Substance: KETAMINE
     Dosage: 25 MG BEFORE SKIN INCISION AND 25 MG ABOUT AN OUR BEFORE THE END OF SURGERY.
  10. REMIFENTANIL [Suspect]
     Active Substance: REMIFENTANIL
     Dosage: PER MINUTE
     Route: 042

REACTIONS (7)
  - Delirium [Unknown]
  - Drug interaction [Unknown]
  - Confusional state [Unknown]
  - Somnolence [Recovering/Resolving]
  - Disorientation [Recovered/Resolved]
  - Aphasia [Recovered/Resolved]
  - Nystagmus [Unknown]
